FAERS Safety Report 4531951-5 (Version None)
Quarter: 2004Q4

REPORT INFORMATION
  Report Type: 
  Country: None (occurrence: None)
  Receive Date: 20041216
  Receipt Date: 20041208
  Transmission Date: 20050328
  Serious: Yes (Hospitalization)
  Sender: FDA-Public Use
  Company Number: USA040157064

PATIENT
  Age: 73 Year
  Sex: Female

DRUGS (1)
  1. FORTEO [Suspect]
     Indication: OSTEOPOROSIS
     Dosage: 20 UG DAY
     Dates: start: 20031111

REACTIONS (4)
  - FRACTURE NONUNION [None]
  - IMPAIRED HEALING [None]
  - MEDICAL DEVICE COMPLICATION [None]
  - NAUSEA [None]
